FAERS Safety Report 18912747 (Version 2)
Quarter: 2022Q1

REPORT INFORMATION
  Report Type: Spontaneous
  Country: CA (occurrence: CA)
  Receive Date: 20210219
  Receipt Date: 20220331
  Transmission Date: 20220423
  Serious: Yes (Hospitalization)
  Sender: FDA-Public Use
  Company Number: CA-SA-SAC20210216001098

PATIENT
  Age: 47 Year
  Sex: Male

DRUGS (2)
  1. LEMTRADA [Suspect]
     Active Substance: ALEMTUZUMAB
     Route: 042
     Dates: start: 20161031
  2. GABAPENTIN [Concomitant]
     Active Substance: GABAPENTIN
     Dosage: 600MG-900MG-600MG

REACTIONS (2)
  - Mesenteric panniculitis [Unknown]
  - Pain [Unknown]

NARRATIVE: CASE EVENT DATE: 20210212
